FAERS Safety Report 9025338 (Version 1)
Quarter: 2012Q4

REPORT INFORMATION
  Report Type: 
  Country: BR (occurrence: BR)
  Receive Date: 20121211
  Receipt Date: 20121211
  Transmission Date: 20130627
  Serious: Yes (Other)
  Sender: FDA-Public Use
  Company Number: PHHY2012BR094777

PATIENT
  Sex: Female
  Weight: 60 kg

DRUGS (6)
  1. DIOVAN AMLO FIX [Suspect]
     Indication: HYPERTENSION
     Dosage: 1 DF(160 mg vals + 5 mg amlo), BID
     Route: 048
  2. DIOVAN [Suspect]
  3. ARELIX [Suspect]
     Indication: DIURETIC THERAPY
     Dosage: UNK UKN, QD
  4. FUROSEMIDE W/POTASSIUM CHLORIDE [Concomitant]
     Indication: DIURETIC THERAPY
     Dosage: UNK UKN, QD, in the morning
     Dates: start: 20121016
  5. CALTRATE WITH VITAMIN D [Concomitant]
     Indication: MINERAL SUPPLEMENTATION
     Dosage: 1 DF, daily
     Route: 048
  6. SIMVASTATIN [Concomitant]
     Indication: BLOOD CHOLESTEROL INCREASED
     Dosage: 1 DF, at lunch
     Route: 048

REACTIONS (13)
  - Local swelling [Recovered/Resolved]
  - Feeling abnormal [Recovered/Resolved]
  - Neck pain [Recovered/Resolved]
  - Musculoskeletal discomfort [Recovered/Resolved]
  - Nausea [Recovered/Resolved]
  - Joint destruction [Recovered/Resolved]
  - Pain in extremity [Recovered/Resolved]
  - Arthralgia [Recovered/Resolved]
  - Dry throat [Recovered/Resolved]
  - Blood cholesterol increased [Recovered/Resolved]
  - Dry mouth [Recovered/Resolved]
  - Tachycardia [Recovered/Resolved]
  - Pollakiuria [Recovered/Resolved]
